FAERS Safety Report 18369411 (Version 5)
Quarter: 2021Q2

REPORT INFORMATION
  Report Type: Report from Study
  Country: None (occurrence: US)
  Receive Date: 20201012
  Receipt Date: 20210610
  Transmission Date: 20210717
  Serious: Yes (Other)
  Sender: FDA-Public Use
  Company Number: US-ABBVIE-20K-163-3603383-00

PATIENT
  Age: 73 Year
  Sex: Female
  Weight: 62.2 kg

DRUGS (2)
  1. RINVOQ [Suspect]
     Active Substance: UPADACITINIB
     Indication: RHEUMATOID ARTHRITIS
     Route: 048
     Dates: start: 202006
  2. RINVOQ [Suspect]
     Active Substance: UPADACITINIB
     Route: 048

REACTIONS (16)
  - Asthenia [Not Recovered/Not Resolved]
  - Abdominal discomfort [Recovering/Resolving]
  - Joint stiffness [Recovering/Resolving]
  - Headache [Unknown]
  - Fatigue [Recovering/Resolving]
  - Muscle spasms [Unknown]
  - Fall [Recovering/Resolving]
  - Haemoglobin decreased [Unknown]
  - Vision blurred [Unknown]
  - Odynophagia [Unknown]
  - Arthralgia [Unknown]
  - Contusion [Recovering/Resolving]
  - Carotid artery occlusion [Unknown]
  - Pain in extremity [Unknown]
  - Pain [Unknown]
  - Arthralgia [Recovering/Resolving]

NARRATIVE: CASE EVENT DATE: 2020
